FAERS Safety Report 9997838 (Version 1)
Quarter: 2014Q1

REPORT INFORMATION
  Report Type: Spontaneous
  Country: US (occurrence: None)
  Receive Date: 20140225
  Receipt Date: 20140225
  Transmission Date: 20141002
  Serious: Yes (Other)
  Sender: FDA-Public Use
  Company Number: 2013-US-001948

PATIENT
  Age: 65 Year
  Sex: Female

DRUGS (5)
  1. PRIALT [Suspect]
     Indication: POST LAMINECTOMY SYNDROME
     Dosage: UG, QH, INTRATHECAL
     Dates: start: 20130725
  2. PRIALT [Suspect]
     Indication: PAIN
     Dosage: UG, QH, INTRATHECAL
     Dates: start: 20130725
  3. FENTANYL (FENTANYL CITRATE) INJECTION [Concomitant]
  4. PERCOCET (OXYCODONE HYDROCHLORIDE, PARACETAMOL) [Concomitant]
  5. RELLISTOR (METHYLNALTREXONE BROMIDE) [Concomitant]

REACTIONS (7)
  - Hallucination [None]
  - Nephrolithiasis [None]
  - Mania [None]
  - Somnolence [None]
  - Irritability [None]
  - Decreased appetite [None]
  - Confusional state [None]
